FAERS Safety Report 5010927-8 (Version None)
Quarter: 2006Q2

REPORT INFORMATION
  Report Type: 
  Country: None (occurrence: None)
  Receive Date: 20060525
  Receipt Date: 20060404
  Transmission Date: 20061013
  Serious: Yes (Other)
  Sender: FDA-Public Use
  Company Number: 2006UW05900

PATIENT
  Age: 46 Year
  Sex: Male
  Weight: 117.9 kg

DRUGS (19)
  1. SEROQUEL [Suspect]
     Indication: POST-TRAUMATIC STRESS DISORDER
     Route: 048
     Dates: start: 20050601, end: 20060401
  2. SEROQUEL [Suspect]
     Indication: PANIC ATTACK
     Route: 048
     Dates: start: 20050601, end: 20060401
  3. SEROQUEL [Suspect]
     Indication: SCHIZOPHRENIA
     Route: 048
     Dates: start: 20050601, end: 20060401
  4. SEROQUEL [Suspect]
     Route: 048
     Dates: start: 20051201
  5. SEROQUEL [Suspect]
     Route: 048
     Dates: start: 20051201
  6. SEROQUEL [Suspect]
     Route: 048
     Dates: start: 20051201
  7. PAXIL [Suspect]
     Dates: start: 20050601, end: 20060301
  8. VALIUM [Suspect]
  9. HYDROCODONE [Concomitant]
  10. PSEUDOEPHEDRINE HCL [Concomitant]
  11. CLONAZEPAM [Concomitant]
  12. MECLIZINE [Concomitant]
  13. POTASSIUM [Concomitant]
  14. HYDROCHLOROTHIAZIDE [Concomitant]
  15. SULINDAC [Concomitant]
  16. BACLOFEN [Concomitant]
  17. NAPROXEN [Concomitant]
  18. TRAZODONE HCL [Concomitant]
  19. PROSCAR [Concomitant]

REACTIONS (18)
  - ABDOMINAL PAIN UPPER [None]
  - ASTHENIA [None]
  - BLINDNESS [None]
  - CHEST PAIN [None]
  - DIZZINESS [None]
  - HEADACHE [None]
  - HOSTILITY [None]
  - HYPERGLYCAEMIA [None]
  - HYPERTENSION [None]
  - ORTHOSTATIC HYPOTENSION [None]
  - PALPITATIONS [None]
  - PROSTATE CANCER [None]
  - RASH [None]
  - SUICIDAL IDEATION [None]
  - TACHYCARDIA [None]
  - TINNITUS [None]
  - VISION BLURRED [None]
  - WEIGHT INCREASED [None]
